FAERS Safety Report 19006783 (Version 1)
Quarter: 2021Q1

REPORT INFORMATION
  Report Type: Spontaneous
  Country: US (occurrence: US)
  Receive Date: 20210312
  Receipt Date: 20210312
  Transmission Date: 20210420
  Serious: No
  Sender: FDA-Public Use
  Company Number: None

PATIENT
  Age: 69 Year
  Sex: Male
  Weight: 75.15 kg

DRUGS (11)
  1. ALLOPURINOL. [Suspect]
     Active Substance: ALLOPURINOL
     Route: 048
     Dates: start: 20190918
  2. CARVEDILOL. [Concomitant]
     Active Substance: CARVEDILOL
  3. OMEGA [Concomitant]
  4. FLORASTOR [Concomitant]
     Active Substance: SACCHAROMYCES CEREVISIAE
  5. WARFARIN [Concomitant]
     Active Substance: WARFARIN
  6. CBD OIL [Concomitant]
     Active Substance: CANNABIDIOL\HERBALS
  7. VITAMIN D3 [Concomitant]
     Active Substance: CHOLECALCIFEROL
  8. ACYCLOVIR. [Concomitant]
     Active Substance: ACYCLOVIR
  9. MULTIVITAMIN [Concomitant]
     Active Substance: VITAMINS
  10. MIRALAX [Concomitant]
     Active Substance: POLYETHYLENE GLYCOL 3350
  11. AFRIN [Concomitant]
     Active Substance: OXYMETAZOLINE

REACTIONS (1)
  - Pain in extremity [None]

NARRATIVE: CASE EVENT DATE: 20210312
